FAERS Safety Report 8068379-X (Version None)
Quarter: 2012Q1

REPORT INFORMATION
  Report Type: 
  Country: None (occurrence: None)
  Receive Date: 20120124
  Receipt Date: 20111017
  Transmission Date: 20120608
  Serious: No
  Sender: FDA-Public Use
  Company Number: US-AMGEN-USASP2011053841

PATIENT
  Age: 76 Year
  Sex: Female

DRUGS (6)
  1. PROLIA [Suspect]
     Indication: OSTEOPENIA
     Dosage: UNK
     Dates: start: 20111011
  2. VITAMIN D [Concomitant]
     Dosage: 1 IU, QD
  3. CALCIUM [Concomitant]
     Dosage: 1 MG, QD
  4. THYROID [Concomitant]
  5. POTASSIUM CHLORIDE [Concomitant]
     Dosage: UNK
  6. MAGNESIUM SULFATE [Concomitant]
     Dosage: UNK

REACTIONS (3)
  - PARAESTHESIA [None]
  - GASTROOESOPHAGEAL REFLUX DISEASE [None]
  - HYPOAESTHESIA [None]
